FAERS Safety Report 5438004-2 (Version None)
Quarter: 2007Q3

REPORT INFORMATION
  Report Type: 
  Country: None (occurrence: None)
  Receive Date: 20070831
  Receipt Date: 20070629
  Transmission Date: 20080115
  Serious: No
  Sender: FDA-Public Use
  Company Number: A0660668A

PATIENT
  Sex: Female

DRUGS (4)
  1. ALLI [Suspect]
     Dates: start: 20070618, end: 20070628
  2. BLOOD PRESSURE MEDICATION [Concomitant]
  3. THYROID TAB [Concomitant]
  4. HRT [Concomitant]

REACTIONS (1)
  - URTICARIA [None]
